FAERS Safety Report 21000058 (Version 1)
Quarter: 2022Q2

REPORT INFORMATION
  Report Type: Other
  Country: CN (occurrence: CN)
  Receive Date: 20220623
  Receipt Date: 20220623
  Transmission Date: 20220721
  Serious: Yes (Other)
  Sender: FDA-Public Use
  Company Number: CN-GE HEALTHCARE-2022CSU004254

PATIENT
  Age: 35 Year
  Sex: Female
  Weight: 55 kg

DRUGS (3)
  1. OMNIPAQUE [Suspect]
     Active Substance: IOHEXOL
     Indication: Salpingogram
     Dosage: 10 ML, SINGLE
     Route: 015
     Dates: start: 20220530, end: 20220530
  2. OMNIPAQUE [Suspect]
     Active Substance: IOHEXOL
     Indication: Infertility female
  3. LIPIODOL [Concomitant]
     Active Substance: ETHIODIZED OIL
     Indication: Salpingogram
     Dosage: UNK
     Dates: start: 20220530, end: 20220530

REACTIONS (1)
  - Loss of consciousness [Recovered/Resolved]

NARRATIVE: CASE EVENT DATE: 20220530
